FAERS Safety Report 4560668-6 (Version None)
Quarter: 2005Q1

REPORT INFORMATION
  Report Type: 
  Country: None (occurrence: None)
  Receive Date: 20050124
  Receipt Date: 20050124
  Transmission Date: 20050727
  Serious: Yes (Hospitalization)
  Sender: FDA-Public Use
  Company Number: None

PATIENT
  Age: 46 Year
  Sex: Female
  Weight: 117.9352 kg

DRUGS (1)
  1. CARIMUNE [Suspect]
     Indication: HYPOGAMMAGLOBULINAEMIA
     Dosage: START @ 30CC , INCREASE EVERY 15 MIN, TO 60, 90 AND THEN 120 CC
     Dates: start: 20041112

REACTIONS (10)
  - ASTHMA [None]
  - BASEDOW'S DISEASE [None]
  - CONDITION AGGRAVATED [None]
  - DRUG HYPERSENSITIVITY [None]
  - GASTROOESOPHAGEAL REFLUX DISEASE [None]
  - HYPOTHYROIDISM [None]
  - MITRAL VALVE PROLAPSE [None]
  - OSTEOPENIA [None]
  - PYREXIA [None]
  - SLEEP APNOEA SYNDROME [None]
